FAERS Safety Report 15219377 (Version 1)
Quarter: 2018Q3

REPORT INFORMATION
  Report Type: Spontaneous
  Country: US (occurrence: US)
  Receive Date: 20180731
  Receipt Date: 20180731
  Transmission Date: 20181010
  Serious: No
  Sender: FDA-Public Use
  Company Number: US-EMMAUS MEDICAL, INC.-EMM201806-000171

PATIENT
  Sex: Male

DRUGS (8)
  1. ENDARI [Suspect]
     Active Substance: GLUTAMINE
     Indication: SICKLE CELL DISEASE
     Dates: start: 20180413
  2. CLARINTIN [Concomitant]
  3. PENICILLIN [Concomitant]
     Active Substance: PENICILLIN
  4. FOLIC ACID. [Concomitant]
     Active Substance: FOLIC ACID
  5. HYDROXYUREA. [Concomitant]
     Active Substance: HYDROXYUREA
  6. ALBUTEROL. [Concomitant]
     Active Substance: ALBUTEROL
  7. SINGULAIR [Concomitant]
     Active Substance: MONTELUKAST SODIUM
  8. FLOVENT [Concomitant]
     Active Substance: FLUTICASONE PROPIONATE

REACTIONS (1)
  - Drug dose omission [Unknown]
